FAERS Safety Report 21265303 (Version 1)
Quarter: 2022Q3

REPORT INFORMATION
  Report Type: Spontaneous
  Country: NL (occurrence: None)
  Receive Date: 20220829
  Receipt Date: 20220829
  Transmission Date: 20221027
  Serious: Yes (Other)
  Sender: FDA-Public Use
  Company Number: None

PATIENT
  Age: 51 Year
  Sex: Female

DRUGS (1)
  1. OCRELIZUMAB [Suspect]
     Active Substance: OCRELIZUMAB
     Indication: Multiple sclerosis
     Dosage: 600 MG PER KEER PER INFUUS, ELK HALF JAAR
     Route: 065
     Dates: start: 20210901, end: 20220802

REACTIONS (2)
  - Metastases to liver [Unknown]
  - Metastases to pancreas [Unknown]

NARRATIVE: CASE EVENT DATE: 20220801
